FAERS Safety Report 6539391-4 (Version None)
Quarter: 2010Q1

REPORT INFORMATION
  Report Type: 
  Country: None (occurrence: None)
  Receive Date: 20100111
  Receipt Date: 20091223
  Transmission Date: 20100710
  Serious: Yes (Hospitalization)
  Sender: FDA-Public Use
  Company Number: 2009003927

PATIENT
  Sex: Female
  Weight: 77 kg

DRUGS (2)
  1. ERLOTINIB HYDROCHLORIDE [Suspect]
     Indication: PANCREATIC CARCINOMA
     Dosage: 100 MG, QD, ORAL
     Route: 048
     Dates: start: 20091019, end: 20091212
  2. GEMCITABINE [Suspect]
     Indication: PANCREATIC CARCINOMA
     Dosage: 1000 MG/M2, 1000 MG/M2/ DOSE OVER 30 MIN DAYS 1, 8, 15), INTRAVENOUS
     Route: 042
     Dates: start: 20091019, end: 20091130

REACTIONS (2)
  - PLEURAL EFFUSION [None]
  - PNEUMONITIS [None]
